FAERS Safety Report 12995605 (Version 1)
Quarter: 2016Q4

REPORT INFORMATION
  Report Type: Spontaneous
  Country: US (occurrence: US)
  Receive Date: 20161202
  Receipt Date: 20161202
  Transmission Date: 20170207
  Serious: No
  Sender: FDA-Public Use
  Company Number: US-GLAXOSMITHKLINE-US2016178329

PATIENT
  Sex: Female

DRUGS (1)
  1. PREVACID 24 HR [Suspect]
     Active Substance: LANSOPRAZOLE
     Indication: COUGH
     Dosage: 1 DF, UNK, TOOK ONE LAST NIGHT
     Route: 048
     Dates: start: 20161127

REACTIONS (1)
  - Product use issue [Unknown]
